FAERS Safety Report 8347838-6 (Version None)
Quarter: 2012Q2

REPORT INFORMATION
  Report Type: 
  Country: None (occurrence: None)
  Receive Date: 20120509
  Receipt Date: 20120502
  Transmission Date: 20120825
  Serious: Yes (Death)
  Sender: FDA-Public Use
  Company Number: GB-GLAXOSMITHKLINE-B0799168A

PATIENT
  Age: 57 Year
  Sex: Male
  Weight: 85 kg

DRUGS (7)
  1. FENTANYL CITRATE [Concomitant]
     Indication: PAIN MANAGEMENT
     Dates: start: 20110501
  2. ZOPICLONE [Concomitant]
     Indication: INSOMNIA
     Dosage: 22.5MG PER DAY
     Dates: start: 20110101
  3. DOMPERIDONE [Concomitant]
     Indication: VOMITING
     Route: 048
     Dates: start: 20110801
  4. ONDANSETRON [Suspect]
     Indication: VOMITING
     Route: 030
     Dates: start: 20110917
  5. CYCLIZINE [Concomitant]
     Indication: VOMITING
     Dosage: 150MG PER DAY
     Route: 058
     Dates: start: 20110801
  6. DOMPERIDONE [Concomitant]
     Route: 054
     Dates: start: 20110801
  7. OXYCODONE HCL [Concomitant]
     Indication: PAIN MANAGEMENT
     Route: 048
     Dates: start: 20110801

REACTIONS (4)
  - BRADYCARDIA [None]
  - FEELING HOT [None]
  - TACHYCARDIA [None]
  - NECK PAIN [None]
